FAERS Safety Report 7852077-9 (Version None)
Quarter: 2011Q3

REPORT INFORMATION
  Report Type: 
  Country: None (occurrence: None)
  Receive Date: 20110906
  Receipt Date: 20110711
  Transmission Date: 20111222
  Serious: No
  Sender: FDA-Public Use
  Company Number: 201106024

PATIENT
  Age: 82 Year
  Sex: Male
  Weight: 70.3075 kg

DRUGS (5)
  1. CARDIAC THERAPY (CARDIAC THERAPY) [Concomitant]
  2. METOPROLOL TARTRATE [Concomitant]
  3. XIAFLEX [Suspect]
     Dosage: 1 IN 1 D, INTRALESIONAL
     Route: 026
     Dates: start: 20110606, end: 20110606
  4. WARFARIN SODIUM [Suspect]
     Dosage: 5 MG ALTERNATING WITH 2.5 MG, ORAL ; 5 MG ALTERNATING WITH 2.5 MG, ORAL
     Route: 048
     Dates: start: 20110609
  5. WARFARIN SODIUM [Suspect]
     Dosage: 5 MG ALTERNATING WITH 2.5 MG, ORAL ; 5 MG ALTERNATING WITH 2.5 MG, ORAL
     Route: 048
     Dates: end: 20110607

REACTIONS (4)
  - HAEMORRHAGE [None]
  - INJECTION SITE SWELLING [None]
  - LACERATION [None]
  - INAPPROPRIATE SCHEDULE OF DRUG ADMINISTRATION [None]
